FAERS Safety Report 10161098 (Version 1)
Quarter: 2014Q2

REPORT INFORMATION
  Report Type: Spontaneous
  Country: US (occurrence: US)
  Receive Date: 20140508
  Receipt Date: 20140508
  Transmission Date: 20141212
  Serious: No
  Sender: FDA-Public Use
  Company Number: US-PFIZER INC-2014122967

PATIENT
  Age: 61 Year
  Sex: Male
  Weight: 86 kg

DRUGS (2)
  1. TIKOSYN [Suspect]
     Indication: HEART RATE ABNORMAL
     Dosage: 500 UG, 2X/DAY
     Route: 048
     Dates: start: 2010, end: 2011
  2. TOPROL [Concomitant]
     Indication: CARDIAC DISORDER
     Dosage: 50 MG, 2X/DAY

REACTIONS (2)
  - Muscle spasms [Recovered/Resolved]
  - Diarrhoea [Unknown]
